FAERS Safety Report 7470499-5 (Version None)
Quarter: 2011Q2

REPORT INFORMATION
  Report Type: 
  Country: None (occurrence: None)
  Receive Date: 20110510
  Receipt Date: 20110505
  Transmission Date: 20111010
  Serious: Yes (Hospitalization)
  Sender: FDA-Public Use
  Company Number: US-BRISTOL-MYERS SQUIBB COMPANY-15721756

PATIENT
  Age: 75 Year
  Sex: Female
  Weight: 53 kg

DRUGS (7)
  1. TRICOR [Concomitant]
     Dates: start: 20071205
  2. ACETYL SALICYLIC ACID USP BAT [Concomitant]
     Dates: start: 20071205
  3. LISINOPRIL AND HYDROCHLOROTHIAZIDE [Concomitant]
     Dates: start: 20110312
  4. ACETAMINOPHEN AND HYDROCODONE BITARTRATE [Concomitant]
     Dates: start: 20110305
  5. CISPLATIN [Suspect]
     Indication: NON-SMALL CELL LUNG CANCER
     Dosage: EVERY 28 DAYS
     Route: 042
     Dates: start: 20110413
  6. LEVAQUIN [Concomitant]
     Dates: start: 20110417
  7. PROCHLORPERAZINE MALEATE [Concomitant]
     Dates: start: 20110217

REACTIONS (2)
  - RENAL FAILURE ACUTE [None]
  - CARDIAC FAILURE CONGESTIVE [None]
